FAERS Safety Report 19349304 (Version 3)
Quarter: 2021Q3

REPORT INFORMATION
  Report Type: Spontaneous
  Country: US (occurrence: US)
  Receive Date: 20210531
  Receipt Date: 20210701
  Transmission Date: 20211014
  Serious: Yes (Other)
  Sender: FDA-Public Use
  Company Number: US-GLENMARK PHARMACEUTICALS-2021GMK054086

PATIENT
  Age: 76 Year
  Sex: Female

DRUGS (1)
  1. LITHIUM. [Suspect]
     Active Substance: LITHIUM
     Indication: BIPOLAR DISORDER
     Dosage: 300 MILLIGRAM, QD (DAILY)
     Route: 065

REACTIONS (1)
  - Hypertrophic cardiomyopathy [Unknown]
